FAERS Safety Report 5289432-X (Version None)
Quarter: 2007Q2

REPORT INFORMATION
  Report Type: 
  Country: None (occurrence: None)
  Receive Date: 20070406
  Receipt Date: 20070326
  Transmission Date: 20071010
  Serious: Yes (Other)
  Sender: FDA-Public Use
  Company Number: PHBS2007NZ05486

PATIENT
  Age: 43 Year
  Sex: Male

DRUGS (1)
  1. NEORAL [Suspect]
     Indication: DERMATITIS ATOPIC
     Dosage: 100 MG, BID
     Route: 048
     Dates: start: 20040811

REACTIONS (2)
  - RETINAL DETACHMENT [None]
  - RETINOPEXY [None]
